FAERS Safety Report 12579284 (Version 1)
Quarter: 2016Q3

REPORT INFORMATION
  Report Type: Spontaneous
  Country: JP (occurrence: JP)
  Receive Date: 20160721
  Receipt Date: 20160721
  Transmission Date: 20161109
  Serious: Yes (Life-Threatening)
  Sender: FDA-Public Use
  Company Number: JP-ASTRAZENECA-2016SE78201

PATIENT
  Age: 90 Year
  Sex: Female

DRUGS (3)
  1. BI-SIFROL [Concomitant]
     Active Substance: PRAMIPEXOLE
  2. SEROQUEL [Suspect]
     Active Substance: QUETIAPINE FUMARATE
     Route: 048
  3. ROHYPNOL [Concomitant]
     Active Substance: FLUNITRAZEPAM

REACTIONS (4)
  - Choking [Unknown]
  - Dysphagia [Unknown]
  - Extrapyramidal disorder [Unknown]
  - Aspiration [Recovered/Resolved]
